FAERS Safety Report 18394454 (Version 1)
Quarter: 2020Q4

REPORT INFORMATION
  Report Type: Spontaneous
  Country: US (occurrence: US)
  Receive Date: 20201016
  Receipt Date: 20201016
  Transmission Date: 20210114
  Serious: Yes (Other)
  Sender: FDA-Public Use
  Company Number: US-PRINSTON PHARMACEUTICAL INC.-2020PRN00347

PATIENT
  Age: 56 Year
  Sex: Female
  Weight: 50.8 kg

DRUGS (1)
  1. ROPINIROLE HYDROCHLORIDE. [Suspect]
     Active Substance: ROPINIROLE HYDROCHLORIDE
     Indication: RESTLESS LEGS SYNDROME
     Dosage: 2 MG, 1X/DAY
     Route: 048
     Dates: start: 20200930, end: 20201001

REACTIONS (15)
  - Loss of consciousness [Recovered/Resolved]
  - Chest injury [Unknown]
  - Hyperhidrosis [Unknown]
  - Tinnitus [Recovered/Resolved]
  - Vision blurred [Unknown]
  - Oral pain [Not Recovered/Not Resolved]
  - Nausea [Recovered/Resolved]
  - Facial pain [Not Recovered/Not Resolved]
  - Musculoskeletal chest pain [Not Recovered/Not Resolved]
  - Joint injury [Unknown]
  - Vomiting [Recovered/Resolved]
  - Head injury [Unknown]
  - Lip injury [Unknown]
  - Mouth injury [Unknown]
  - Hypotension [Unknown]

NARRATIVE: CASE EVENT DATE: 20201001
